FAERS Safety Report 6582287-2 (Version None)
Quarter: 2010Q1

REPORT INFORMATION
  Report Type: 
  Country: None (occurrence: None)
  Receive Date: 20100212
  Receipt Date: 20100212
  Transmission Date: 20100710
  Serious: Yes (Hospitalization)
  Sender: FDA-Public Use
  Company Number: None

PATIENT
  Sex: Male
  Weight: 81.81 kg

DRUGS (4)
  1. MEMANTINE HCL [Suspect]
     Dosage: 980 MG
  2. ASPIRIN [Concomitant]
  3. JANUMET [Concomitant]
  4. LIPITOR [Concomitant]

REACTIONS (7)
  - ABDOMINAL PAIN [None]
  - CHEST PAIN [None]
  - COUGH [None]
  - HYPERHIDROSIS [None]
  - NAUSEA [None]
  - PLEURAL EFFUSION [None]
  - VOMITING [None]
